FAERS Safety Report 6813806-6 (Version None)
Quarter: 2010Q3

REPORT INFORMATION
  Report Type: 
  Country: None (occurrence: None)
  Receive Date: 20100702
  Receipt Date: 20090721
  Transmission Date: 20110219
  Serious: Yes (Other)
  Sender: FDA-Public Use
  Company Number: US-ASTRAZENECA-2007UW05081

PATIENT
  Age: 12319 Day
  Sex: Female

DRUGS (8)
  1. SEROQUEL [Suspect]
     Route: 048
     Dates: start: 20040623
  2. QUININE SULFATE [Concomitant]
     Route: 048
     Dates: start: 20040813
  3. ALPRAZOLAM [Concomitant]
     Route: 048
     Dates: start: 20040623
  4. VIOXX [Concomitant]
     Route: 048
     Dates: start: 20040609
  5. PERCOCET [Concomitant]
     Dates: start: 20060901
  6. CYMBALTA [Concomitant]
     Dosage: 60 TO 180 MG
     Dates: start: 20060901
  7. PREDNISONE TAB [Concomitant]
     Dosage: 5 TO 10 MG
     Dates: start: 20060901
  8. DEPO-MEDROL [Concomitant]
     Dosage: 40 TO 60 MG/ML
     Route: 030
     Dates: start: 20060911

REACTIONS (6)
  - DIABETES MELLITUS [None]
  - DIABETIC KETOACIDOSIS [None]
  - DIABETIC NEUROPATHY [None]
  - NEUROPATHY PERIPHERAL [None]
  - PANCREATITIS [None]
  - TYPE 2 DIABETES MELLITUS [None]
